FAERS Safety Report 20149085 (Version 4)
Quarter: 2022Q1

REPORT INFORMATION
  Report Type: Spontaneous
  Country: TR (occurrence: TR)
  Receive Date: 20211204
  Receipt Date: 20220220
  Transmission Date: 20220423
  Serious: Yes (Other)
  Sender: FDA-Public Use
  Company Number: TR-NOVARTISPH-NVSC2021TR270674

PATIENT
  Age: 60 Year
  Sex: Female

DRUGS (5)
  1. TEGRETOL [Suspect]
     Active Substance: CARBAMAZEPINE
     Indication: Bone pain
     Dosage: UNK
     Route: 065
     Dates: start: 1998
  2. TEGRETOL [Suspect]
     Active Substance: CARBAMAZEPINE
     Dosage: 1 DF, TID
     Route: 048
  3. TEGRETOL [Suspect]
     Active Substance: CARBAMAZEPINE
     Dosage: 1 DF, QOD
     Route: 048
  4. TEGRETOL [Suspect]
     Active Substance: CARBAMAZEPINE
     Dosage: UNK
     Route: 065
     Dates: start: 20211206
  5. TEGRETOL [Suspect]
     Active Substance: CARBAMAZEPINE
     Dosage: UNK
     Route: 065
     Dates: start: 20211207

REACTIONS (19)
  - Facial paralysis [Unknown]
  - Psychotic disorder [Unknown]
  - Lower limb fracture [Unknown]
  - Multiple sclerosis relapse [Unknown]
  - Sleep disorder [Unknown]
  - Arthralgia [Unknown]
  - Myalgia [Unknown]
  - Bone pain [Unknown]
  - Muscle spasms [Unknown]
  - Alopecia [Unknown]
  - Feeling cold [Unknown]
  - Nail disorder [Unknown]
  - Dizziness [Unknown]
  - Fatigue [Unknown]
  - Speech disorder [Unknown]
  - Pruritus [Unknown]
  - Product supply issue [Unknown]
  - Inappropriate schedule of product administration [Unknown]
  - Off label use [Unknown]

NARRATIVE: CASE EVENT DATE: 20190101
